FAERS Safety Report 9891650 (Version 1)
Quarter: 2014Q1

REPORT INFORMATION
  Report Type: Spontaneous
  Country: FR (occurrence: FR)
  Receive Date: 20140212
  Receipt Date: 20140212
  Transmission Date: 20141002
  Serious: Yes (Hospitalization)
  Sender: FDA-Public Use
  Company Number: PHHY2014FR015554

PATIENT
  Age: 79 Year
  Sex: Female
  Weight: 70 kg

DRUGS (8)
  1. GLIVEC [Suspect]
     Dosage: 400 MG, QD
     Dates: start: 20131024, end: 20131112
  2. GLIVEC [Suspect]
     Dosage: UNK
     Dates: start: 20131211
  3. ALTIZIDE, SPIRONOLACTONE [Suspect]
     Indication: HYPERTENSION
     Dosage: 1 DF, QD
     Dates: end: 20131113
  4. LODOZ [Suspect]
     Indication: HYPERTENSION
     Dosage: 1 DF, QD
     Dates: end: 20131113
  5. AMLOR [Concomitant]
     Indication: HYPERTENSION
     Dosage: 5 MG, QD
  6. EUPRESSYL [Concomitant]
     Indication: HYPERTENSION
     Dosage: 30 MG, BID
  7. TAHOR [Concomitant]
     Indication: HYPERCHOLESTEROLAEMIA
     Dosage: 20 MG, QD
     Dates: end: 201312
  8. NOVONORM [Concomitant]
     Indication: TYPE 2 DIABETES MELLITUS
     Dosage: 1 MG, TID

REACTIONS (2)
  - Inappropriate antidiuretic hormone secretion [Recovered/Resolved]
  - Hyponatraemia [Recovered/Resolved]
